FAERS Safety Report 17667711 (Version 1)
Quarter: 2020Q2

REPORT INFORMATION
  Report Type: Spontaneous
  Country: FR (occurrence: FR)
  Receive Date: 20200414
  Receipt Date: 20200414
  Transmission Date: 20200713
  Serious: Yes (Hospitalization)
  Sender: FDA-Public Use
  Company Number: NVSC2020FR099522

PATIENT
  Age: 65 Year
  Sex: Female
  Weight: 57 kg

DRUGS (1)
  1. AFINITOR [Suspect]
     Active Substance: EVEROLIMUS
     Indication: NEUROENDOCRINE TUMOUR
     Dosage: 10 MG, QD
     Route: 048
     Dates: start: 20170206, end: 20170228

REACTIONS (6)
  - Thrombocytopenia [Recovered/Resolved]
  - Hyperlipidaemia [Recovered/Resolved]
  - Acne [Recovered/Resolved]
  - Aphthous ulcer [Recovered/Resolved]
  - Mucosal inflammation [Recovered/Resolved]
  - Neutropenia [Recovered/Resolved]

NARRATIVE: CASE EVENT DATE: 20170220
